FAERS Safety Report 6175829-2 (Version None)
Quarter: 2009Q2

REPORT INFORMATION
  Report Type: 
  Country: None (occurrence: None)
  Receive Date: 20090501
  Receipt Date: 20090422
  Transmission Date: 20091009
  Serious: Yes (Other)
  Sender: FDA-Public Use
  Company Number: AU-AMGEN-QUU324259

PATIENT
  Sex: Female
  Weight: 65 kg

DRUGS (6)
  1. NEULASTA [Suspect]
     Indication: CHEMOTHERAPY
     Route: 058
     Dates: start: 20081120, end: 20081120
  2. FLUOROURACIL [Concomitant]
     Dates: start: 20081119
  3. EPIRUBICIN [Concomitant]
     Dates: start: 20081119
  4. CYCLOPHOSPHAMIDE [Concomitant]
     Dates: start: 20081119
  5. ZOFRAN [Concomitant]
     Dates: start: 20081120
  6. EMEND [Concomitant]
     Dates: start: 20081120

REACTIONS (5)
  - DERMATITIS ALLERGIC [None]
  - HYPERSENSITIVITY [None]
  - PARAESTHESIA [None]
  - PRURITUS [None]
  - SWOLLEN TONGUE [None]
